FAERS Safety Report 19261331 (Version 1)
Quarter: 2021Q2

REPORT INFORMATION
  Report Type: Spontaneous
  Country: US (occurrence: US)
  Receive Date: 20210515
  Receipt Date: 20210515
  Transmission Date: 20210717
  Serious: Yes (Hospitalization, Other)
  Sender: FDA-Public Use
  Company Number: US-ACCORD-225046

PATIENT
  Age: 91 Year
  Sex: Female

DRUGS (3)
  1. AMITRIPTYLINE [Suspect]
     Active Substance: AMITRIPTYLINE
     Indication: NEUROPATHY PERIPHERAL
     Dosage: AS PRESCRIBED
  2. AMITRIPTYLINE [Suspect]
     Active Substance: AMITRIPTYLINE
     Indication: CYSTITIS INTERSTITIAL
     Dosage: PATIENT MIGHT HAVE TAKEN MULTIPLE AMITRIPTYLINE TABLETS
  3. AMITRIPTYLINE [Suspect]
     Active Substance: AMITRIPTYLINE
     Indication: CYSTITIS INTERSTITIAL
     Dosage: AS PRESCRIBED, PATIENT MIGHT HAVE TAKEN MULTIPLE AMITRIPTYLINE TABLETS

REACTIONS (10)
  - Inappropriate schedule of product administration [Recovering/Resolving]
  - Off label use [Unknown]
  - Urinary tract infection [Unknown]
  - Acute kidney injury [Unknown]
  - Hydroureter [Unknown]
  - Bladder dilatation [Recovered/Resolved]
  - Hydronephrosis [Unknown]
  - Escherichia infection [Unknown]
  - Abdominal discomfort [Recovered/Resolved]
  - Urinary retention [Recovered/Resolved]
